FAERS Safety Report 18566409 (Version 13)
Quarter: 2021Q3

REPORT INFORMATION
  Report Type: Report from Study
  Country: PA (occurrence: PA)
  Receive Date: 20201201
  Receipt Date: 20210925
  Transmission Date: 20211014
  Serious: Yes (Life-Threatening, Hospitalization)
  Sender: FDA-Public Use
  Company Number: NVSC2020PA303843

PATIENT
  Age: 21 Year
  Sex: Male
  Weight: 120 kg

DRUGS (14)
  1. REVOLADE [Suspect]
     Active Substance: ELTROMBOPAG OLAMINE
     Dosage: 150 MG, QD
     Route: 048
     Dates: start: 201706
  2. REVOLADE [Suspect]
     Active Substance: ELTROMBOPAG OLAMINE
     Dosage: 150 MG, QD
     Route: 048
     Dates: start: 201707
  3. IMMUNOGLOBULIN [IMMUNOGLOBULINS NOS] [Suspect]
     Active Substance: IMMUNE GLOBULIN NOS
     Indication: PRODUCT USED FOR UNKNOWN INDICATION
     Dosage: UNK
     Route: 065
  4. OMEPRAZOLE. [Concomitant]
     Active Substance: OMEPRAZOLE
     Indication: PROPHYLAXIS
     Dosage: 1 DF (1 OF 20 MG)
     Route: 048
     Dates: start: 20201018
  5. NEORAL [Suspect]
     Active Substance: CYCLOSPORINE
     Indication: APLASTIC ANAEMIA
     Dosage: 100 MG, QD
     Route: 048
     Dates: start: 20201018
  6. NEORAL [Suspect]
     Active Substance: CYCLOSPORINE
     Dosage: 200 IU, QOD, (TUESDAY, THURSDAY, SATURDAY AND SUNDAY)
     Route: 065
     Dates: start: 20201018
  7. NEORAL [Suspect]
     Active Substance: CYCLOSPORINE
     Dosage: 300 IU, QOD,  (MONDAY, WEDNESDAY, FRIDAY)
     Route: 065
     Dates: start: 20201018
  8. NEORAL [Suspect]
     Active Substance: CYCLOSPORINE
     Dosage: 150 MG, BID (150MG IN THE MORNING AND 150MG AT NIGHT)
     Route: 065
  9. OMEPRAZOLE. [Concomitant]
     Active Substance: OMEPRAZOLE
     Indication: APLASTIC ANAEMIA
  10. DANAZOL. [Concomitant]
     Active Substance: DANAZOL
     Indication: PRODUCT USED FOR UNKNOWN INDICATION
     Dosage: UNK
     Route: 065
     Dates: start: 20210917
  11. REVOLADE [Suspect]
     Active Substance: ELTROMBOPAG OLAMINE
     Indication: APLASTIC ANAEMIA
     Dosage: 150 MG (6 OF 25 MG)
     Route: 065
     Dates: start: 2016
  12. REVOLADE [Suspect]
     Active Substance: ELTROMBOPAG OLAMINE
     Dosage: UNK
     Route: 065
     Dates: end: 202009
  13. REVOLADE [Suspect]
     Active Substance: ELTROMBOPAG OLAMINE
     Dosage: UNK
     Route: 065
     Dates: start: 20201102
  14. THYMOGLOBULIN [Concomitant]
     Active Substance: LAPINE T-LYMPHOCYTE IMMUNE GLOBULIN
     Indication: APLASTIC ANAEMIA
     Dosage: UNK
     Route: 065

REACTIONS (9)
  - Platelet count decreased [Unknown]
  - Vomiting [Unknown]
  - Drug ineffective [Unknown]
  - Fatigue [Unknown]
  - Product use in unapproved indication [Unknown]
  - Petechiae [Unknown]
  - Inappropriate schedule of product administration [Unknown]
  - Noninfective gingivitis [Unknown]
  - Haemoglobin decreased [Unknown]

NARRATIVE: CASE EVENT DATE: 202009
